FAERS Safety Report 10548073 (Version 2)
Quarter: 2014Q4

REPORT INFORMATION
  Report Type: Report from Study
  Country: BR (occurrence: BR)
  Receive Date: 20141028
  Receipt Date: 20141125
  Transmission Date: 20150529
  Serious: Yes (Hospitalization, Other)
  Sender: FDA-Public Use
  Company Number: PHHY2014BR140057

PATIENT
  Sex: Female
  Weight: 24 kg

DRUGS (3)
  1. HIDROXIUREA [Concomitant]
     Active Substance: HYDROXYUREA
     Dosage: 1 DF, QD
     Route: 048
     Dates: start: 201308
  2. EXJADE [Suspect]
     Active Substance: DEFERASIROX
     Indication: SICKLE CELL ANAEMIA
     Dosage: 375 MG (1 DF OF 250MG AND 1 DF OF 125MG), QD
     Route: 048
  3. HIDROXIUREA [Concomitant]
     Active Substance: HYDROXYUREA
     Indication: SICKLE CELL ANAEMIA
     Dosage: 1 DF, IN ALTERNATE DAYS
     Route: 048
     Dates: start: 201306, end: 201308

REACTIONS (2)
  - Pneumonia [Recovered/Resolved]
  - Back pain [Recovered/Resolved]
